FAERS Safety Report 20796641 (Version 6)
Quarter: 2024Q3

REPORT INFORMATION
  Report Type: Spontaneous
  Country: US (occurrence: US)
  Receive Date: 20220506
  Receipt Date: 20240930
  Transmission Date: 20241017
  Serious: Yes (Other)
  Sender: PFIZER
  Company Number: US-PFIZER INC-202101732672

PATIENT
  Age: 87 Year
  Sex: Female

DRUGS (3)
  1. XELJANZ XR [Suspect]
     Active Substance: TOFACITINIB CITRATE
     Indication: Rheumatoid arthritis
     Dosage: 11 MG, 1X/DAY
     Dates: start: 201905
  2. XELJANZ XR [Suspect]
     Active Substance: TOFACITINIB CITRATE
     Dosage: 11 MG
     Dates: start: 202002
  3. XELJANZ XR [Suspect]
     Active Substance: TOFACITINIB CITRATE
     Dosage: 11 MG  XELJANZ ONE TABLET EVERY OTHER DAY/11 MG 1 BY MOUTH EVERY OTHER DAY (3 TIMES A WEEK)
     Route: 048
     Dates: start: 202302

REACTIONS (10)
  - Atrial fibrillation [Unknown]
  - Rheumatoid arthritis [Unknown]
  - Thoracic vertebral fracture [Unknown]
  - Therapeutic product effect incomplete [Unknown]
  - Limb discomfort [Unknown]
  - Spinal osteoarthritis [Unknown]
  - Radiculopathy [Unknown]
  - Body height decreased [Unknown]
  - Back pain [Unknown]
  - Intentional product misuse [Unknown]

NARRATIVE: CASE EVENT DATE: 20220101
